FAERS Safety Report 14080676 (Version 1)
Quarter: 2017Q4

REPORT INFORMATION
  Report Type: Spontaneous
  Country: US (occurrence: US)
  Receive Date: 20171012
  Receipt Date: 20171012
  Transmission Date: 20180321
  Serious: No
  Sender: FDA-Public Use
  Company Number: US-MYLANLABS-2017M1039557

PATIENT
  Age: 48 Year
  Sex: Male

DRUGS (3)
  1. INDOMETHACIN CAPSULES, USP [Suspect]
     Active Substance: INDOMETHACIN
     Indication: PAIN
     Dosage: 25 MG, TID
     Route: 048
     Dates: start: 20170623, end: 201706
  2. VICODIN [Concomitant]
     Active Substance: ACETAMINOPHEN\HYDROCODONE BITARTRATE
     Indication: PAIN
     Dosage: UNK
     Dates: end: 201706
  3. OXYCONTIN [Concomitant]
     Active Substance: OXYCODONE HYDROCHLORIDE
     Indication: PAIN
     Dosage: 2 MG, PER 4-6 HOURS
     Dates: start: 201706

REACTIONS (4)
  - Feeling abnormal [Not Recovered/Not Resolved]
  - Hallucination [Not Recovered/Not Resolved]
  - Abnormal dreams [Not Recovered/Not Resolved]
  - Emotional disorder [Not Recovered/Not Resolved]

NARRATIVE: CASE EVENT DATE: 20170623
